FAERS Safety Report 9192721 (Version 1)
Quarter: 2013Q1

REPORT INFORMATION
  Report Type: Spontaneous
  Country: FR (occurrence: FR)
  Receive Date: 20130327
  Receipt Date: 20130327
  Transmission Date: 20140127
  Serious: Yes (Hospitalization, Other)
  Sender: FDA-Public Use
  Company Number: FR-GE HEALTHCARE MEDICAL DIAGNOSTICS-OMPQ-PR-1303S-0379

PATIENT
  Age: 86 Year
  Sex: Female

DRUGS (14)
  1. OMNIPAQUE [Suspect]
     Indication: AORTIC STENOSIS
     Route: 013
     Dates: start: 20130204, end: 20130204
  2. OMNIPAQUE [Suspect]
     Indication: DIAGNOSTIC PROCEDURE
  3. CORTANCYL [Concomitant]
  4. FORLAX [Concomitant]
  5. PREVISCAN [Concomitant]
  6. LASILIX [Concomitant]
  7. AERIUS [Concomitant]
  8. DEPAMIDE [Concomitant]
  9. NEXIUM [Concomitant]
  10. NEBILOX [Concomitant]
  11. SEROPRAM [Concomitant]
  12. ATARAX [Concomitant]
  13. COVERSYL [Concomitant]
  14. CACIT D3 [Concomitant]

REACTIONS (3)
  - Rash [Recovered/Resolved]
  - Glossodynia [Recovered/Resolved]
  - Rash maculo-papular [Recovered/Resolved]
